FAERS Safety Report 12552921 (Version 5)
Quarter: 2018Q1

REPORT INFORMATION
  Report Type: Report from Study
  Country: JP (occurrence: JP)
  Receive Date: 20160713
  Receipt Date: 20180315
  Transmission Date: 20180508
  Serious: Yes (Hospitalization, Other)
  Sender: FDA-Public Use
  Company Number: JP-IPSEN BIOPHARMACEUTICALS, INC.-2014-6293

PATIENT
  Age: 40 Year
  Sex: Female

DRUGS (15)
  1. CONSTAN [Concomitant]
     Active Substance: ALPRAZOLAM
     Route: 048
     Dates: end: 20150513
  2. CINAL [Concomitant]
     Active Substance: ASCORBIC ACID\CALCIUM PANTOTHENATE
     Route: 048
     Dates: end: 20140901
  3. LOXONIN [Concomitant]
     Active Substance: LOXOPROFEN SODIUM
     Route: 062
     Dates: start: 20130702, end: 20141203
  4. FERROMIA [Concomitant]
     Active Substance: SODIUM FERROUS CITRATE
     Route: 048
     Dates: end: 20140901
  5. CONSTAN [Concomitant]
     Active Substance: ALPRAZOLAM
     Route: 048
     Dates: start: 20150514
  6. CELECOX [Concomitant]
     Active Substance: CELECOXIB
     Route: 048
     Dates: start: 20141113
  7. LANREOTIDE [Suspect]
     Active Substance: LANREOTIDE
     Indication: ACROMEGALY
     Dosage: 90 MG
     Route: 058
     Dates: start: 20130702, end: 20131003
  8. LOXONIN [Concomitant]
     Active Substance: LOXOPROFEN SODIUM
     Route: 061
     Dates: start: 20150514
  9. ALLEGRA [Concomitant]
     Active Substance: FEXOFENADINE HYDROCHLORIDE
     Indication: RHINITIS PROPHYLAXIS
     Route: 048
     Dates: end: 20131003
  10. ALLEGRA [Concomitant]
     Active Substance: FEXOFENADINE HYDROCHLORIDE
     Dates: start: 20140327, end: 20151216
  11. CABASER [Concomitant]
     Active Substance: CABERGOLINE
     Indication: ACROMEGALY
     Route: 048
     Dates: start: 20140902
  12. LANREOTIDE [Suspect]
     Active Substance: LANREOTIDE
     Dosage: 90 MG
     Route: 058
     Dates: start: 20140327, end: 20150817
  13. LANREOTIDE [Suspect]
     Active Substance: LANREOTIDE
     Dosage: 60 MG
     Route: 058
     Dates: start: 20150917
  14. SENNOSIDE [Concomitant]
     Active Substance: SENNOSIDES
     Route: 048
  15. FERROUS CITRATE NA [Concomitant]
     Active Substance: SODIUM FERROUS CITRATE
     Indication: IRON DEFICIENCY ANAEMIA
     Route: 048
     Dates: start: 20150305, end: 20150716

REACTIONS (5)
  - Umbilical cord abnormality [Unknown]
  - Exposure during pregnancy [Unknown]
  - Rhinitis allergic [Recovered/Resolved]
  - Premature delivery [Unknown]
  - Foetal growth restriction [Unknown]

NARRATIVE: CASE EVENT DATE: 201401
